FAERS Safety Report 26195726 (Version 1)
Quarter: 2025Q4

REPORT INFORMATION
  Report Type: Spontaneous
  Country: EU (occurrence: EU)
  Receive Date: 20251224
  Receipt Date: 20251224
  Transmission Date: 20260118
  Serious: Yes (Hospitalization, Other)
  Sender: MERCK KGAA
  Company Number: EU-Merck Healthcare KGaA-2025065032

PATIENT
  Age: 68 Year
  Sex: Female
  Weight: 63 kg

DRUGS (1)
  1. METFORMIN [Suspect]
     Active Substance: METFORMIN HYDROCHLORIDE
     Indication: Diabetes mellitus
     Dosage: DOSE: 2 G UNIT: 1 DAY[S]
     Dates: start: 2010, end: 20251205

REACTIONS (3)
  - Acute kidney injury [Unknown]
  - Lactic acidosis [Recovering/Resolving]
  - Diarrhoea [Unknown]

NARRATIVE: CASE EVENT DATE: 20251202
